FAERS Safety Report 15632492 (Version 1)
Quarter: 2018Q4

REPORT INFORMATION
  Report Type: Report from Study
  Country: US (occurrence: US)
  Receive Date: 20181119
  Receipt Date: 20181119
  Transmission Date: 20190205
  Serious: Yes (Other)
  Sender: FDA-Public Use
  Company Number: US-JNJFOC-20180523179

PATIENT
  Age: 68 Year
  Sex: Male

DRUGS (21)
  1. CITALOPRAM [Concomitant]
     Active Substance: CITALOPRAM HYDROBROMIDE
  2. LOPERAMIDE [Concomitant]
     Active Substance: LOPERAMIDE
  3. POTASSIUM [Concomitant]
     Active Substance: POTASSIUM
  4. IMBRUVICA [Suspect]
     Active Substance: IBRUTINIB
     Indication: PROLYMPHOCYTIC LEUKAEMIA
     Route: 042
     Dates: start: 2016
  5. NOVOLOG [Concomitant]
     Active Substance: INSULIN ASPART
  6. METOPROLOL. [Concomitant]
     Active Substance: METOPROLOL
  7. BACTRIM [Concomitant]
     Active Substance: SULFAMETHOXAZOLE\TRIMETHOPRIM
  8. ACYCLOVIR. [Concomitant]
     Active Substance: ACYCLOVIR
  9. PROPAFENONE. [Concomitant]
     Active Substance: PROPAFENONE
  10. CENTRUM [Concomitant]
     Active Substance: VITAMINS
  11. LOSARTAN. [Concomitant]
     Active Substance: LOSARTAN
  12. IMBRUVICA [Suspect]
     Active Substance: IBRUTINIB
     Indication: CHRONIC LYMPHOCYTIC LEUKAEMIA
     Route: 048
     Dates: start: 20180424, end: 2018
  13. METFORMIN [Concomitant]
     Active Substance: METFORMIN HYDROCHLORIDE
  14. IMBRUVICA [Suspect]
     Active Substance: IBRUTINIB
     Indication: PROLYMPHOCYTIC LEUKAEMIA
     Route: 048
     Dates: start: 20180424, end: 2018
  15. ONDANSETRON [Concomitant]
     Active Substance: ONDANSETRON
  16. GABAPENTIN. [Concomitant]
     Active Substance: GABAPENTIN
  17. IMBRUVICA [Suspect]
     Active Substance: IBRUTINIB
     Indication: CHRONIC LYMPHOCYTIC LEUKAEMIA
     Route: 048
     Dates: start: 20180301, end: 20180423
  18. SIMVASTATIN. [Concomitant]
     Active Substance: SIMVASTATIN
  19. PROTONIX [Concomitant]
     Active Substance: PANTOPRAZOLE SODIUM
  20. SALBUTAMOL SULFATE [Concomitant]
     Active Substance: ALBUTEROL SULFATE
  21. TOUJEO [Concomitant]
     Active Substance: INSULIN GLARGINE

REACTIONS (7)
  - Cardiac flutter [Not Recovered/Not Resolved]
  - Blood glucose increased [Not Recovered/Not Resolved]
  - Injection site haemorrhage [Unknown]
  - Needle issue [Unknown]
  - Incorrect route of product administration [Unknown]
  - Off label use [Unknown]
  - Adverse drug reaction [Unknown]

NARRATIVE: CASE EVENT DATE: 2016
